FAERS Safety Report 19257650 (Version 1)
Quarter: 2021Q2

REPORT INFORMATION
  Report Type: Spontaneous
  Country: US (occurrence: US)
  Receive Date: 20210513
  Receipt Date: 20210513
  Transmission Date: 20210717
  Serious: No
  Sender: FDA-Public Use
  Company Number: None

PATIENT
  Sex: Female

DRUGS (1)
  1. HUMIRA [Suspect]
     Active Substance: ADALIMUMAB
     Indication: HIDRADENITIS
     Route: 058
     Dates: start: 202101

REACTIONS (5)
  - Injection site extravasation [None]
  - Wrong technique in device usage process [None]
  - Incorrect dose administered [None]
  - Device malfunction [None]
  - Condition aggravated [None]
